FAERS Safety Report 8007125-2 (Version None)
Quarter: 2011Q4

REPORT INFORMATION
  Report Type: 
  Country: None (occurrence: None)
  Receive Date: 20111227
  Receipt Date: 20111220
  Transmission Date: 20120403
  Serious: Yes (Other)
  Sender: FDA-Public Use
  Company Number: JP-B.I. PHARMACEUTICALS,INC./RIDGEFIELD-2011-BP-27937NB

PATIENT
  Age: 77 Year
  Sex: Female

DRUGS (5)
  1. DEPAS [Concomitant]
     Dosage: 1 MG
     Route: 065
  2. RABEPRAZOLE SODIUM [Concomitant]
     Indication: GASTROOESOPHAGEAL REFLUX DISEASE
     Dosage: 10 MG
     Route: 065
  3. PRADAXA [Suspect]
     Dosage: 220 MG
     Route: 048
     Dates: start: 20111025
  4. FERROUS CITRATE [Concomitant]
     Dosage: 50 MG
     Route: 065
  5. URSO 250 [Concomitant]
     Dosage: 200 MG
     Route: 065

REACTIONS (1)
  - OESOPHAGEAL ULCER [None]
